FAERS Safety Report 14689411 (Version 4)
Quarter: 2018Q3

REPORT INFORMATION
  Report Type: Spontaneous
  Country: FR (occurrence: FR)
  Receive Date: 20180328
  Receipt Date: 20180709
  Transmission Date: 20181010
  Serious: Yes (Death, Hospitalization)
  Sender: FDA-Public Use
  Company Number: FR-TEVA-2018-FR-872509

PATIENT
  Age: 46 Year
  Sex: Female

DRUGS (5)
  1. OLANZAPINE. [Concomitant]
     Active Substance: OLANZAPINE
     Dosage: 7.5 MILLIGRAM DAILY;
     Route: 048
  2. LORMETAZEPAM [Concomitant]
     Active Substance: LORMETAZEPAM
     Dosage: 1 MILLIGRAM DAILY;
     Route: 048
  3. TERCIAN [Concomitant]
     Active Substance: CYAMEMAZINE
     Dosage: 50 MILLIGRAM DAILY;
     Route: 048
  4. LORAZEPAM. [Concomitant]
     Active Substance: LORAZEPAM
     Dosage: 7.5 MILLIGRAM DAILY;
     Route: 048
  5. PAROXETINE TEVA 20 MG [Suspect]
     Active Substance: PAROXETINE
     Indication: DEPRESSION
     Dosage: 60 MILLIGRAM DAILY;
     Route: 048
     Dates: start: 19970517, end: 20180102

REACTIONS (4)
  - Multiple organ dysfunction syndrome [Fatal]
  - Accidental overdose [Fatal]
  - Cardiac arrest [Recovered/Resolved]
  - Hepatic steatosis [Fatal]

NARRATIVE: CASE EVENT DATE: 2018
